FAERS Safety Report 15515572 (Version 26)
Quarter: 2021Q1

REPORT INFORMATION
  Report Type: Other
  Country: DE (occurrence: DE)
  Receive Date: 20181017
  Receipt Date: 20210204
  Transmission Date: 20210419
  Serious: Yes (Other)
  Sender: FDA-Public Use
  Company Number: DE-ROCHE-2199160

PATIENT
  Age: 35 Year
  Sex: Female

DRUGS (10)
  1. BACLOFEN. [Concomitant]
     Active Substance: BACLOFEN
     Dosage: AS REQUIRED (5?10 MG)
  2. FAMPYRA [Concomitant]
     Active Substance: DALFAMPRIDINE
  3. NITROFURANTOIN. [Concomitant]
     Active Substance: NITROFURANTOIN
     Indication: PROPHYLAXIS URINARY TRACT INFECTION
     Dosage: AT NIGHT
  4. OCREVUS [Suspect]
     Active Substance: OCRELIZUMAB
     Indication: RELAPSING-REMITTING MULTIPLE SCLEROSIS
     Route: 042
     Dates: start: 20180628, end: 20180712
  5. MEMANTINE. [Concomitant]
     Active Substance: MEMANTINE
     Dosage: 1_0_0
  6. NITROXOLIN FORTE [Concomitant]
  7. OCREVUS [Suspect]
     Active Substance: OCRELIZUMAB
     Dosage: RECENT DOSE: 10/DEC/2020
     Route: 042
     Dates: start: 20201126
  8. EMSELEX [Concomitant]
     Active Substance: DARIFENACIN HYDROBROMIDE
     Dosage: 1?0?0
  9. FAMPYRA [Concomitant]
     Active Substance: DALFAMPRIDINE
     Dosage: 1?0?1
  10. OCREVUS [Suspect]
     Active Substance: OCRELIZUMAB
     Route: 042
     Dates: start: 20201210

REACTIONS (10)
  - Alopecia [Recovered/Resolved]
  - Muscle spasticity [Recovered/Resolved]
  - Menstrual disorder [Recovered/Resolved]
  - Hordeolum [Recovered/Resolved]
  - Gait disturbance [Recovering/Resolving]
  - Muscular weakness [Recovered/Resolved]
  - Parkinsonian gait [Recovered/Resolved]
  - Urinary tract infection bacterial [Recovered/Resolved]
  - Fatigue [Recovered/Resolved]
  - Micturition urgency [Not Recovered/Not Resolved]

NARRATIVE: CASE EVENT DATE: 20180628
